FAERS Safety Report 7703807-8 (Version None)
Quarter: 2011Q3

REPORT INFORMATION
  Report Type: 
  Country: None (occurrence: None)
  Receive Date: 20110823
  Receipt Date: 20110815
  Transmission Date: 20111222
  Serious: Yes (Hospitalization)
  Sender: FDA-Public Use
  Company Number: CZ-TEVA-296477ISR

PATIENT
  Age: 51 Year
  Sex: Male
  Weight: 124.5 kg

DRUGS (9)
  1. METHOTREXATE [Suspect]
     Route: 048
     Dates: start: 20070728, end: 20110427
  2. IBUPROFEN [Concomitant]
     Indication: RHEUMATOID ARTHRITIS
     Dates: start: 20070901
  3. METHOTREXATE [Suspect]
     Indication: RHEUMATOID ARTHRITIS
     Dosage: 10 MILLIGRAM;
     Route: 048
     Dates: start: 20080505, end: 20090726
  4. LEUCOVORIN CALCIUM [Concomitant]
     Indication: DRUG TOXICITY PROPHYLAXIS
     Dates: start: 20070623
  5. METHOTREXATE [Suspect]
     Route: 048
     Dates: start: 20110428
  6. VIGANTOL ^BAYER^ [Concomitant]
     Indication: OSTEOPOROSIS PROPHYLAXIS
     Route: 048
     Dates: start: 20070101
  7. CALCIUM CARBONATE [Concomitant]
     Indication: OSTEOPOROSIS PROPHYLAXIS
     Dates: start: 20070807
  8. PREDNISONE TAB [Concomitant]
     Indication: RHEUMATOID ARTHRITIS
     Dates: start: 20101001
  9. OMEPRAZOLE [Concomitant]
     Indication: PROPHYLAXIS AGAINST GASTROINTESTINAL ULCER
     Dates: start: 20090727

REACTIONS (1)
  - ERYSIPELAS [None]
